FAERS Safety Report 4837316-0 (Version None)
Quarter: 2005Q4

REPORT INFORMATION
  Report Type: 
  Country: None (occurrence: None)
  Receive Date: 20051122
  Receipt Date: 20051024
  Transmission Date: 20060501
  Serious: Yes (Disabling)
  Sender: FDA-Public Use
  Company Number: S05-AUS-05159-00

PATIENT
  Age: 75 Year
  Sex: Male

DRUGS (1)
  1. CITALOPRAM HYDROBROMIDE [Suspect]
     Dosage: 30 MG QD PO
     Route: 048

REACTIONS (4)
  - C-REACTIVE PROTEIN INCREASED [None]
  - DYSPNOEA [None]
  - EOSINOPHILIA [None]
  - INTERSTITIAL LUNG DISEASE [None]
